FAERS Safety Report 6307324-1 (Version None)
Quarter: 2009Q3

REPORT INFORMATION
  Report Type: 
  Country: None (occurrence: None)
  Receive Date: 20090811
  Receipt Date: 20090710
  Transmission Date: 20100115
  Serious: No
  Sender: FDA-Public Use
  Company Number: 1000007395

PATIENT
  Age: 45 Year
  Sex: Female

DRUGS (8)
  1. SAVELLA [Suspect]
     Indication: FIBROMYALGIA
     Dosage: 12.5 MG (12.5 MG, 1 IN 1 D),ORAL : 25 MG (12.5 MG, 2 IN 1 D),ORAL : 50 MG (25 MG, 2 IN 1 D),ORAL
     Route: 048
     Dates: start: 20090706, end: 20090706
  2. SAVELLA [Suspect]
     Indication: FIBROMYALGIA
     Dosage: 12.5 MG (12.5 MG, 1 IN 1 D),ORAL : 25 MG (12.5 MG, 2 IN 1 D),ORAL : 50 MG (25 MG, 2 IN 1 D),ORAL
     Route: 048
     Dates: start: 20090707, end: 20090708
  3. SAVELLA [Suspect]
     Indication: FIBROMYALGIA
     Dosage: 12.5 MG (12.5 MG, 1 IN 1 D),ORAL : 25 MG (12.5 MG, 2 IN 1 D),ORAL : 50 MG (25 MG, 2 IN 1 D),ORAL
     Route: 048
     Dates: start: 20090709
  4. GABAPENTIN [Concomitant]
  5. HYDROCHLOROTHIAZIDE [Concomitant]
  6. NAPROXEN (500 MILLIGRAM) [Concomitant]
  7. NORTRIPTYLINE HCL [Concomitant]
  8. ESTROGEN [Concomitant]

REACTIONS (2)
  - FIBROMYALGIA [None]
  - POOR QUALITY SLEEP [None]
